FAERS Safety Report 18326475 (Version 2)
Quarter: 2020Q4

REPORT INFORMATION
  Report Type: Report from Study
  Country: None (occurrence: US)
  Receive Date: 20200930
  Receipt Date: 20201110
  Transmission Date: 20210113
  Serious: No
  Sender: FDA-Public Use
  Company Number: US-ABBVIE-20K-163-3584584-00

PATIENT
  Sex: Female

DRUGS (1)
  1. RINVOQ [Suspect]
     Active Substance: UPADACITINIB
     Indication: RHEUMATOID ARTHRITIS
     Route: 048
     Dates: start: 20200204

REACTIONS (4)
  - Vaccination site pain [Recovered/Resolved]
  - Vaccination site infection [Recovered/Resolved]
  - Vaccination site swelling [Recovered/Resolved]
  - Vaccination site erythema [Recovered/Resolved]

NARRATIVE: CASE EVENT DATE: 2020
